FAERS Safety Report 5941489-6 (Version None)
Quarter: 2008Q4

REPORT INFORMATION
  Report Type: 
  Country: None (occurrence: None)
  Receive Date: 20081103
  Receipt Date: 20081103
  Transmission Date: 20090506
  Serious: Yes (Other)
  Sender: FDA-Public Use
  Company Number: None

PATIENT
  Sex: Female
  Weight: 63.5036 kg

DRUGS (1)
  1. BETASERON [Suspect]
     Indication: MULTIPLE SCLEROSIS
     Dosage: 0.25 MG QOD SQ
     Route: 058
     Dates: start: 19990101, end: 20081001

REACTIONS (2)
  - BREAST CANCER STAGE III [None]
  - METASTASES TO LYMPH NODES [None]
